FAERS Safety Report 23881978 (Version 3)
Quarter: 2024Q3

REPORT INFORMATION
  Report Type: Spontaneous
  Country: BR (occurrence: BR)
  Receive Date: 20240521
  Receipt Date: 20240711
  Transmission Date: 20241017
  Serious: Yes (Hospitalization, Other)
  Sender: LUNDBECK
  Company Number: BR-SA-SAC20231114000965

PATIENT

DRUGS (30)
  1. SABRIL [Suspect]
     Active Substance: VIGABATRIN
     Indication: Encephalopathy
     Dosage: 1.5 DF, Q12H
     Route: 048
  2. PHENOBARBITAL [Suspect]
     Active Substance: PHENOBARBITAL
     Indication: Epilepsy
     Dosage: UNK
  3. PHENOBARBITAL [Suspect]
     Active Substance: PHENOBARBITAL
     Indication: Cerebral palsy
  4. BACLOFEN [Suspect]
     Active Substance: BACLOFEN
     Dosage: UNK
  5. BACLOFEN [Suspect]
     Active Substance: BACLOFEN
     Indication: Cerebral palsy
  6. BACLOFEN [Suspect]
     Active Substance: BACLOFEN
     Indication: Epilepsy
  7. LEVOMEPROMAZINE [Suspect]
     Active Substance: LEVOMEPROMAZINE
     Indication: Epilepsy
     Dosage: UNK
  8. LEVOMEPROMAZINE [Suspect]
     Active Substance: LEVOMEPROMAZINE
     Indication: Cerebral palsy
  9. NITRAZEPAM [Suspect]
     Active Substance: NITRAZEPAM
     Dosage: 6/6 HOURS
     Dates: start: 20240428
  10. NITRAZEPAM [Suspect]
     Active Substance: NITRAZEPAM
     Indication: Cerebral palsy
  11. NITRAZEPAM [Suspect]
     Active Substance: NITRAZEPAM
     Indication: Epilepsy
  12. GABAPENTIN [Suspect]
     Active Substance: GABAPENTIN
     Dosage: 1.5 DF, Q12H
     Route: 048
  13. GABAPENTIN [Suspect]
     Active Substance: GABAPENTIN
     Indication: Product used for unknown indication
  14. CECLOR [Concomitant]
     Active Substance: CEFACLOR
     Indication: Product used for unknown indication
     Dosage: UNK
  15. VITAMINA B2 [Concomitant]
     Indication: Product used for unknown indication
     Dosage: DOSAGE: 4/4 HOURS
  16. AMPICILLIN [Concomitant]
     Active Substance: AMPICILLIN
     Indication: Product used for unknown indication
     Dosage: UNK
     Dates: end: 20230427
  17. CEFTRIAXONE [Concomitant]
     Active Substance: CEFTRIAXONE\CEFTRIAXONE SODIUM
     Indication: Product used for unknown indication
     Dosage: UNK
     Dates: end: 20230512
  18. OSELTAMIVIR [Concomitant]
     Active Substance: OSELTAMIVIR
     Indication: Product used for unknown indication
     Dosage: DOSAGE: DURING 5 DAYS
  19. PREDNISOLONE [Concomitant]
     Active Substance: PREDNISOLONE
     Indication: Product used for unknown indication
     Dosage: UNK
     Dates: end: 20230415
  20. TRILEPTAL [Concomitant]
     Active Substance: OXCARBAZEPINE
     Indication: Product used for unknown indication
     Dosage: UNK
     Dates: end: 20230411
  21. ATROVENT [Concomitant]
     Active Substance: IPRATROPIUM BROMIDE
     Dosage: DOSAGE: 6/6 HOURS
  22. ATROVENT [Concomitant]
     Active Substance: IPRATROPIUM BROMIDE
     Indication: Product used for unknown indication
  23. CEFALEXINA [CEFALEXIN] [Concomitant]
     Dosage: 10 ML, QD
  24. CEFALEXINA [CEFALEXIN] [Concomitant]
     Indication: Prophylaxis urinary tract infection
  25. CANNABIDIOL [Suspect]
     Active Substance: CANNABIDIOL
     Dosage: UNK
  26. CANNABIDIOL [Suspect]
     Active Substance: CANNABIDIOL
     Indication: Product used for unknown indication
  27. CLENIL [BECLOMETASONE DIPROPIONATE] [Concomitant]
     Dosage: 250 UG
  28. CLENIL [BECLOMETASONE DIPROPIONATE] [Concomitant]
     Indication: Product used for unknown indication
  29. VIGABATRIN [Concomitant]
     Active Substance: VIGABATRIN
     Dosage: 1.5 DF, Q12H
     Route: 048
  30. VIGABATRIN [Concomitant]
     Active Substance: VIGABATRIN
     Indication: Epileptic encephalopathy

REACTIONS (13)
  - Oxygen saturation decreased [Unknown]
  - Pneumonia [Recovered/Resolved]
  - Pericardial effusion [Unknown]
  - Seizure [Unknown]
  - Aspiration [Unknown]
  - Cough [Unknown]
  - Hyporeflexia [Unknown]
  - Adenoidal hypertrophy [Unknown]
  - Salivary gland disorder [Unknown]
  - Scoliosis [Unknown]
  - Generalised oedema [Unknown]
  - Urinary tract infection [Recovered/Resolved]
  - Pyrexia [Unknown]

NARRATIVE: CASE EVENT DATE: 20230409
